FAERS Safety Report 5924409 (Version 13)
Quarter: 2020Q3

REPORT INFORMATION
  Report Type: Report from Study
  Country: US (occurrence: US)
  Receive Date: 20051117
  Receipt Date: 20100611
  Transmission Date: 20201105
  Serious: Yes (Death, Hospitalization)
  Sender: FDA-Public Use
  Company Number: US-JNJFOC-20051103011

PATIENT
  Age: 53 Year
  Sex: Male
  Weight: 65.7 kg

DRUGS (3)
  1. CISAPRIDE [Suspect]
     Active Substance: CISAPRIDE
     Indication: GASTROOESOPHAGEAL REFLUX DISEASE
     Route: 048
  2. UNKNOWN MEDICATION [Concomitant]
     Active Substance: UNSPECIFIED INGREDIENT
     Indication: HEART TRANSPLANT
     Route: 065
  3. CISAPRIDE [Suspect]
     Active Substance: CISAPRIDE
     Route: 048

REACTIONS (6)
  - Bundle branch block left [None]
  - Arteriosclerosis coronary artery [Fatal]
  - Coronary artery disease [Fatal]
  - Dystonia [None]
  - Electrocardiogram QT prolonged [Fatal]
  - Myocardial ischaemia [Unknown]

NARRATIVE: CASE EVENT DATE: 20051109
